FAERS Safety Report 7651422-7 (Version None)
Quarter: 2011Q3

REPORT INFORMATION
  Report Type: 
  Country: None (occurrence: None)
  Receive Date: 20110802
  Receipt Date: 20110722
  Transmission Date: 20111222
  Serious: Yes (Hospitalization, Other)
  Sender: FDA-Public Use
  Company Number: PHEH2010US03489

PATIENT
  Sex: Female

DRUGS (5)
  1. METOPROLOL TARTRATE [Concomitant]
  2. ZELNORM [Suspect]
     Dates: start: 20060101
  3. CLONIDINE [Concomitant]
  4. NORVASC [Concomitant]
  5. ZOCOR [Concomitant]

REACTIONS (17)
  - CYANOSIS [None]
  - CHEST PAIN [None]
  - PULMONARY CONGESTION [None]
  - OSTEOARTHRITIS [None]
  - CORONARY ARTERY DISEASE [None]
  - HYPERCHOLESTEROLAEMIA [None]
  - INJURY [None]
  - CARDIOMEGALY [None]
  - RECTAL HAEMORRHAGE [None]
  - GASTROOESOPHAGEAL REFLUX DISEASE [None]
  - MYOCARDIAL INFARCTION [None]
  - OBESITY [None]
  - PULMONARY CALCIFICATION [None]
  - DYSPNOEA [None]
  - PERIPHERAL VASCULAR DISORDER [None]
  - ANGINA UNSTABLE [None]
  - ATELECTASIS [None]
